FAERS Safety Report 5583887-9 (Version None)
Quarter: 2008Q1

REPORT INFORMATION
  Report Type: 
  Country: None (occurrence: None)
  Receive Date: 20080102
  Receipt Date: 20080102
  Transmission Date: 20080703
  Serious: Yes (Hospitalization)
  Sender: FDA-Public Use
  Company Number: None

PATIENT
  Age: 57 Year
  Sex: Female
  Weight: 79.3795 kg

DRUGS (2)
  1. AMBIEN CR [Suspect]
     Indication: INSOMNIA
     Dosage: 1 TABLET  HS  PO
     Route: 048
     Dates: start: 20071102, end: 20071107
  2. AMBIEN CR [Suspect]
     Indication: INSOMNIA
     Dosage: 1 TABLET  HS  PO
     Route: 048
     Dates: start: 20071219, end: 20071219

REACTIONS (2)
  - HYPERCAPNIA [None]
  - UNRESPONSIVE TO STIMULI [None]
